FAERS Safety Report 10168702 (Version 1)
Quarter: 2014Q2

REPORT INFORMATION
  Report Type: Spontaneous
  Country: BR (occurrence: None)
  Receive Date: 20140509
  Receipt Date: 20140509
  Transmission Date: 20141212
  Serious: Yes (Hospitalization)
  Sender: FDA-Public Use
  Company Number: BR-20140047

PATIENT
  Age: 83 Year
  Sex: Male

DRUGS (1)
  1. DOTAREM (GADOTERIC ACID), 13GD326A [Suspect]
     Indication: NUCLEAR MAGNETIC RESONANCE IMAGING
     Route: 042
     Dates: start: 20140423, end: 20140423

REACTIONS (3)
  - Hypertension [None]
  - Dyspnoea [None]
  - Paraesthesia [None]
